FAERS Safety Report 5973401-8 (Version None)
Quarter: 2008Q4

REPORT INFORMATION
  Report Type: 
  Country: None (occurrence: None)
  Receive Date: 20081201
  Receipt Date: 20081120
  Transmission Date: 20090506
  Serious: Yes (Other)
  Sender: FDA-Public Use
  Company Number: GB-AMGEN-US214952

PATIENT
  Sex: Female
  Weight: 43 kg

DRUGS (3)
  1. ENBREL [Suspect]
     Indication: JUVENILE ARTHRITIS
     Route: 058
     Dates: start: 20070130
  2. FOLIC ACID [Concomitant]
     Dosage: UNKNOWN
     Route: 048
     Dates: start: 20070130
  3. METHOTREXATE [Concomitant]
     Indication: PSORIATIC ARTHROPATHY
     Route: 058
     Dates: start: 20060130

REACTIONS (4)
  - AUTOIMMUNE THROMBOCYTOPENIA [None]
  - MALAISE [None]
  - THROMBOCYTOPENIA [None]
  - VIRAL INFECTION [None]
